FAERS Safety Report 12522058 (Version 2)
Quarter: 2016Q3

REPORT INFORMATION
  Report Type: Spontaneous
  Country: US (occurrence: US)
  Receive Date: 20160701
  Receipt Date: 20160713
  Transmission Date: 20161109
  Serious: Yes (Other)
  Sender: FDA-Public Use
  Company Number: US-TEVA-672322USA

PATIENT
  Age: 38 Year
  Sex: Female

DRUGS (2)
  1. ZECUITY [Suspect]
     Active Substance: SUMATRIPTAN SUCCINATE
     Route: 062
     Dates: start: 20160621, end: 20160621
  2. ZECUITY [Suspect]
     Active Substance: SUMATRIPTAN SUCCINATE
     Route: 062
     Dates: start: 20160621, end: 20160621

REACTIONS (5)
  - Sunburn [Unknown]
  - Application site pain [Unknown]
  - Application site vesicles [Unknown]
  - Application site scar [Unknown]
  - Application site erythema [Unknown]

NARRATIVE: CASE EVENT DATE: 2016
